FAERS Safety Report 6574399-4 (Version None)
Quarter: 2010Q1

REPORT INFORMATION
  Report Type: 
  Country: None (occurrence: None)
  Receive Date: 20100209
  Receipt Date: 20100202
  Transmission Date: 20100710
  Serious: Yes (Hospitalization)
  Sender: FDA-Public Use
  Company Number: US-BIOGENIDEC-2006BI007329

PATIENT
  Age: 48 Year
  Sex: Female

DRUGS (4)
  1. AVONEX [Suspect]
     Indication: MULTIPLE SCLEROSIS
     Route: 030
     Dates: start: 20051101
  2. AVONEX [Suspect]
     Route: 030
     Dates: start: 20051101
  3. AVONEX [Suspect]
     Route: 030
     Dates: start: 20051102, end: 20051101
  4. AVONEX [Suspect]
     Route: 030
     Dates: start: 20090201

REACTIONS (4)
  - CEREBROVASCULAR ACCIDENT [None]
  - CONVULSION [None]
  - HAEMOGLOBIN DECREASED [None]
  - HYPERTENSION [None]
